FAERS Safety Report 14318409 (Version 2)
Quarter: 2018Q1

REPORT INFORMATION
  Report Type: Spontaneous
  Country: US (occurrence: US)
  Receive Date: 20171222
  Receipt Date: 20180228
  Transmission Date: 20180509
  Serious: Yes (Life-Threatening)
  Sender: FDA-Public Use
  Company Number: US-GLAXOSMITHKLINE-US2017197728

PATIENT
  Sex: Male

DRUGS (3)
  1. ADVAIR DISKUS [Suspect]
     Active Substance: FLUTICASONE PROPIONATE\SALMETEROL XINAFOATE
     Indication: CHRONIC OBSTRUCTIVE PULMONARY DISEASE
     Dosage: 1 PUFF(S), BID
     Route: 055
  2. NEXIUM [Concomitant]
     Active Substance: ESOMEPRAZOLE MAGNESIUM
  3. IBUPROFEN. [Concomitant]
     Active Substance: IBUPROFEN

REACTIONS (2)
  - Dyspnoea [Unknown]
  - Cough [Unknown]
